FAERS Safety Report 9294937 (Version 2)
Quarter: 2013Q2

REPORT INFORMATION
  Report Type: Spontaneous
  Country: GB (occurrence: GB)
  Receive Date: 20130517
  Receipt Date: 20130619
  Transmission Date: 20140414
  Serious: Yes (Other)
  Sender: FDA-Public Use
  Company Number: GB-MYLANLABS-2013S1009895

PATIENT
  Age: 2 Day
  Sex: Female

DRUGS (9)
  1. DIAZEPAM [Suspect]
     Route: 064
  2. ZOPICLONE [Suspect]
     Route: 064
  3. ALBUTEROL [Suspect]
     Route: 064
  4. BECOTIDE [Suspect]
     Route: 064
  5. METHADONE [Suspect]
     Route: 064
     Dates: end: 2001
  6. NICOTINE [Suspect]
     Route: 064
  7. SUBUTEX [Suspect]
     Route: 064
     Dates: start: 2002, end: 20020706
  8. SUBUTEX [Suspect]
     Dates: start: 2002, end: 2002
  9. SUBUTEX [Suspect]
     Dates: start: 20020228, end: 2002

REACTIONS (2)
  - Foetal exposure during pregnancy [Recovered/Resolved]
  - Drug withdrawal syndrome neonatal [Recovered/Resolved]
